FAERS Safety Report 5205292-7 (Version None)
Quarter: 2006Q4

REPORT INFORMATION
  Report Type: 
  Country: None (occurrence: None)
  Receive Date: 20061027
  Receipt Date: 20060217
  Transmission Date: 20070319
  Serious: Yes (Hospitalization, Other)
  Sender: FDA-Public Use
  Company Number: HQWYE162616MAR05

PATIENT
  Age: 74 Year
  Sex: Female
  Weight: 86.26 kg

DRUGS (6)
  1. PREMARIN [Suspect]
     Indication: OSTEOPOROSIS
     Dosage: ORAL
     Route: 048
     Dates: start: 19910101, end: 20010101
  2. PREMARIN [Suspect]
     Indication: PROPHYLAXIS
     Dosage: ORAL
     Route: 048
     Dates: start: 19910101, end: 20010101
  3. CYCRIN [Suspect]
  4. ACCUPRIL [Concomitant]
  5. MAXIDEX (BENZALKONIUM CHLORIDE/DEXAMETHASONE/PHENYLMERCURIC NITRATE) [Concomitant]
  6. ASPIRIN [Concomitant]

REACTIONS (2)
  - BREAST CANCER [None]
  - PHLEBITIS [None]
